FAERS Safety Report 22915774 (Version 3)
Quarter: 2023Q4

REPORT INFORMATION
  Report Type: Spontaneous
  Country: US (occurrence: US)
  Receive Date: 20230907
  Receipt Date: 20231025
  Transmission Date: 20240109
  Serious: No
  Sender: FDA-Public Use
  Company Number: US-002147023-NVSC2023US193417

PATIENT
  Sex: Female

DRUGS (2)
  1. ILARIS [Suspect]
     Active Substance: CANAKINUMAB
     Indication: Cryopyrin associated periodic syndrome
     Dosage: UNK, (EVERY 8 WEEKS)
     Route: 058
     Dates: start: 20221231
  2. ILARIS [Suspect]
     Active Substance: CANAKINUMAB
     Dosage: UNK, (EVERY 4 WEEKS)
     Route: 058

REACTIONS (2)
  - Hypoacusis [Recovering/Resolving]
  - Therapeutic response unexpected [Unknown]
